FAERS Safety Report 6304811-7 (Version None)
Quarter: 2009Q3

REPORT INFORMATION
  Report Type: 
  Country: None (occurrence: None)
  Receive Date: 20090811
  Receipt Date: 20090805
  Transmission Date: 20100115
  Serious: Yes (Death, Hospitalization)
  Sender: FDA-Public Use
  Company Number: BE-ROCHE-648404

PATIENT
  Age: 78 Year
  Sex: Male
  Weight: 40.7 kg

DRUGS (3)
  1. CAPECITABINE [Suspect]
     Dosage: FROM EVENING OF DAY 1 UNTIL MORNING OF DAY 15
     Route: 048
     Dates: start: 20080917, end: 20090112
  2. CISPLATIN [Suspect]
     Dosage: 1 TO 4 HR INFUSION ON 1ST DAY OF EACH 3 WEEK CYCLE
     Route: 042
     Dates: start: 20080917, end: 20081231
  3. CETUXIMAB [Suspect]
     Dosage: 400MG/M2=80 ML/M2 OVER 120 MIN AT FIRST INFUSION AND THEN EVERY WEEK 250 MG/M2 OVER 60 MIN
     Route: 042
     Dates: start: 20080917, end: 20090114

REACTIONS (1)
  - DECREASED APPETITE [None]
